FAERS Safety Report 8062735-1 (Version None)
Quarter: 2012Q1

REPORT INFORMATION
  Report Type: 
  Country: None (occurrence: None)
  Receive Date: 20120123
  Receipt Date: 20120116
  Transmission Date: 20120608
  Serious: Yes (Hospitalization, Other)
  Sender: FDA-Public Use
  Company Number: US-PFIZER INC-2012013030

PATIENT
  Age: 42 Year
  Sex: Female

DRUGS (1)
  1. BENZATHINE BENZYLPENICILLIN [Suspect]
     Indication: TREPONEMA TEST POSITIVE

REACTIONS (2)
  - INTERSTITIAL LUNG DISEASE [None]
  - VASCULITIS [None]
